FAERS Safety Report 10019632 (Version 1)
Quarter: 2014Q1

REPORT INFORMATION
  Report Type: Spontaneous
  Country: NO (occurrence: NO)
  Receive Date: 20140318
  Receipt Date: 20140318
  Transmission Date: 20141002
  Serious: Yes (Life-Threatening, Hospitalization, Disabling)
  Sender: FDA-Public Use
  Company Number: NO-PFIZER INC-2014076773

PATIENT
  Age: 67 Year
  Sex: Male

DRUGS (5)
  1. CORDARONE [Suspect]
     Indication: VENTRICULAR ARRHYTHMIA
     Dosage: 400 MG, DAILY
     Route: 048
     Dates: start: 2011, end: 201402
  2. SELO-ZOK [Concomitant]
     Dosage: UNK
  3. MAREVAN [Concomitant]
     Dosage: UNK
     Dates: end: 201402
  4. ALDACTONE [Concomitant]
     Dosage: UNK
  5. FURIX [Concomitant]
     Dosage: UNK
     Dates: start: 2011, end: 201402

REACTIONS (6)
  - Hepatic failure [Not Recovered/Not Resolved]
  - Renal failure acute [Unknown]
  - Hepatorenal syndrome [Unknown]
  - Cardiac failure [Unknown]
  - Multi-organ failure [Unknown]
  - Anaemia [Not Recovered/Not Resolved]
